FAERS Safety Report 21527032 (Version 1)
Quarter: 2022Q4

REPORT INFORMATION
  Report Type: Spontaneous
  Country: AU (occurrence: None)
  Receive Date: 20221031
  Receipt Date: 20221031
  Transmission Date: 20230113
  Serious: Yes (Other)
  Sender: FDA-Public Use
  Company Number: AU-Merck Healthcare KGaA-9361052

PATIENT
  Age: 31 Year
  Sex: Male

DRUGS (10)
  1. METFORMIN [Suspect]
     Active Substance: METFORMIN HYDROCHLORIDE
     Indication: Product used for unknown indication
     Route: 065
  2. PANTOPRAZOLE [Suspect]
     Active Substance: PANTOPRAZOLE
     Indication: Product used for unknown indication
     Route: 065
  3. CLOZAPINE [Suspect]
     Active Substance: CLOZAPINE
     Indication: Schizophrenia
     Dosage: THERAPY START DATE: 10-JAN-2019
     Route: 065
  4. CLOZAPINE [Suspect]
     Active Substance: CLOZAPINE
     Route: 065
  5. REBOXETINE [Suspect]
     Active Substance: REBOXETINE
     Indication: Product used for unknown indication
     Route: 065
  6. ATORVASTATIN CALCIUM [Suspect]
     Active Substance: ATORVASTATIN CALCIUM
     Indication: Product used for unknown indication
     Route: 065
  7. ARIPIPRAZOLE [Suspect]
     Active Substance: ARIPIPRAZOLE
     Indication: Schizophrenia
     Route: 030
  8. DIAZEPAM [Suspect]
     Active Substance: DIAZEPAM
     Indication: Anxiety
     Route: 065
  9. DIAZEPAM [Suspect]
     Active Substance: DIAZEPAM
     Route: 065
  10. ATENOLOL [Suspect]
     Active Substance: ATENOLOL
     Indication: Product used for unknown indication
     Route: 065

REACTIONS (19)
  - Cardiac disorder [Unknown]
  - Mitral valve incompetence [Unknown]
  - Obesity [Unknown]
  - Pulmonary valve incompetence [Unknown]
  - Tricuspid valve incompetence [Unknown]
  - Blood cholesterol increased [Unknown]
  - Blood thyroid stimulating hormone increased [Unknown]
  - Blood triglycerides increased [Unknown]
  - C-reactive protein increased [Unknown]
  - Dehydration [Unknown]
  - Dizziness [Unknown]
  - Eosinophilia [Unknown]
  - Heart rate decreased [Unknown]
  - Low density lipoprotein increased [Unknown]
  - Orthostatic hypotension [Unknown]
  - Sinus tachycardia [Unknown]
  - Tachycardia [Not Recovered/Not Resolved]
  - Alanine aminotransferase increased [Unknown]
  - Gamma-glutamyltransferase increased [Unknown]

NARRATIVE: CASE EVENT DATE: 20120618
